FAERS Safety Report 11067392 (Version 1)
Quarter: 2015Q2

REPORT INFORMATION
  Report Type: Spontaneous
  Country: JP (occurrence: JP)
  Receive Date: 20150427
  Receipt Date: 20150427
  Transmission Date: 20150821
  Serious: Yes (Death)
  Sender: FDA-Public Use
  Company Number: JP-ROCHE-1445944

PATIENT
  Sex: Male
  Weight: 52 kg

DRUGS (10)
  1. MIRCERA [Suspect]
     Active Substance: METHOXY POLYETHYLENE GLYCOL-EPOETIN BETA
     Route: 042
     Dates: start: 20131231, end: 20140505
  2. NICORANDIL [Concomitant]
     Active Substance: NICORANDIL
     Indication: DIABETIC NEPHROPATHY
     Route: 048
     Dates: end: 20140521
  3. GASMOTIN [Concomitant]
     Active Substance: MOSAPRIDE CITRATE
     Indication: DIABETIC NEPHROPATHY
     Route: 048
     Dates: end: 20140521
  4. ISOSORBIDE DINITRATE. [Concomitant]
     Active Substance: ISOSORBIDE DINITRATE
     Indication: DIABETIC NEPHROPATHY
     Route: 062
     Dates: end: 20140521
  5. MIRCERA [Suspect]
     Active Substance: METHOXY POLYETHYLENE GLYCOL-EPOETIN BETA
     Route: 042
     Dates: start: 20140520, end: 20140521
  6. MIRCERA [Suspect]
     Active Substance: METHOXY POLYETHYLENE GLYCOL-EPOETIN BETA
     Route: 042
     Dates: start: 20131015, end: 20131230
  7. BAYASPIRIN [Concomitant]
     Active Substance: ASPIRIN
     Indication: DIABETIC NEPHROPATHY
     Route: 048
     Dates: end: 20140521
  8. TAKEPRON [Concomitant]
     Active Substance: LANSOPRAZOLE
     Indication: DIABETIC NEPHROPATHY
     Route: 048
     Dates: end: 20140521
  9. MIRCERA [Suspect]
     Active Substance: METHOXY POLYETHYLENE GLYCOL-EPOETIN BETA
     Indication: NEPHROGENIC ANAEMIA
     Route: 042
     Dates: start: 20130716, end: 20131014
  10. MIRCERA [Suspect]
     Active Substance: METHOXY POLYETHYLENE GLYCOL-EPOETIN BETA
     Route: 042
     Dates: start: 20140506, end: 20140519

REACTIONS (1)
  - Pneumonia aspiration [Fatal]
